FAERS Safety Report 20350145 (Version 1)
Quarter: 2022Q1

REPORT INFORMATION
  Report Type: Spontaneous
  Country: ES (occurrence: ES)
  Receive Date: 20220119
  Receipt Date: 20220119
  Transmission Date: 20220423
  Serious: Yes (Other)
  Sender: FDA-Public Use
  Company Number: ES-ALVOGEN-2022-ALVOGEN-118185

PATIENT
  Age: 73 Year
  Sex: Female

DRUGS (8)
  1. CLINDAMYCIN [Suspect]
     Active Substance: CLINDAMYCIN
     Indication: Infection
     Dosage: 600 MG, 3X/DAY (EVERY 8H)
  2. TIGECYCLINE [Suspect]
     Active Substance: TIGECYCLINE
     Indication: Infection
     Dosage: 50 MG 2X/DAY (EVERY 12H)
  3. REMIFENTANIL [Concomitant]
     Active Substance: REMIFENTANIL
  4. PROPOFOL [Concomitant]
     Active Substance: PROPOFOL
  5. DEXMEDETOMIDINE [Concomitant]
     Active Substance: DEXMEDETOMIDINE
  6. NOREPINEPHRINE [Concomitant]
     Active Substance: NOREPINEPHRINE
  7. PHYTONADIONE [Concomitant]
     Active Substance: PHYTONADIONE
  8. OMEPRAZOLE [Concomitant]
     Active Substance: OMEPRAZOLE

REACTIONS (8)
  - Metabolic acidosis [Recovering/Resolving]
  - Azotaemia [Recovering/Resolving]
  - Mean arterial pressure decreased [Unknown]
  - Urine protein/creatinine ratio abnormal [Unknown]
  - Blood urea increased [Recovering/Resolving]
  - Blood creatinine increased [Recovering/Resolving]
  - Hyperphosphataemia [Unknown]
  - Myopathy [Unknown]
